FAERS Safety Report 4273869-1 (Version None)
Quarter: 2004Q1

REPORT INFORMATION
  Report Type: 
  Country: None (occurrence: None)
  Receive Date: 20040115
  Receipt Date: 20031231
  Transmission Date: 20041129
  Serious: Yes (Death, Hospitalization)
  Sender: FDA-Public Use
  Company Number: F01200301457

PATIENT
  Age: 69 Year
  Sex: Female

DRUGS (2)
  1. OXALIPLATIN - SOLUTION - 190 MG [Suspect]
     Indication: COLORECTAL CANCER METASTATIC
     Dosage: 190 MG Q3W INTRAVENOUS NOS
     Route: 042
     Dates: start: 20031120, end: 20031120
  2. CAPECITABINE - TABLET - 1500 MG [Suspect]
     Dosage: 1500 MG TWICE A DAY FROM DAY 1 TO DAY 15, Q3W ORAL
     Route: 048
     Dates: start: 20031120, end: 20031204

REACTIONS (9)
  - BLOOD CALCIUM DECREASED [None]
  - BLOOD CREATININE INCREASED [None]
  - BLOOD GLUCOSE INCREASED [None]
  - BLOOD POTASSIUM DECREASED [None]
  - BLOOD SODIUM DECREASED [None]
  - C-REACTIVE PROTEIN INCREASED [None]
  - DIARRHOEA [None]
  - SEPSIS [None]
  - SINUS TACHYCARDIA [None]
